FAERS Safety Report 5605834-3 (Version None)
Quarter: 2008Q1

REPORT INFORMATION
  Report Type: 
  Country: None (occurrence: None)
  Receive Date: 20080124
  Receipt Date: 20080111
  Transmission Date: 20080703
  Serious: Yes (Other)
  Sender: FDA-Public Use
  Company Number: 2008S1000894

PATIENT
  Age: 74 Year
  Sex: Female

DRUGS (1)
  1. WARFARIN SODIUM [Suspect]
     Dosage: 4 MG; DAILY : 20 MG;DAILY
     Dates: start: 20080103, end: 20080108

REACTIONS (2)
  - ACCIDENTAL OVERDOSE [None]
  - INTERNATIONAL NORMALISED RATIO INCREASED [None]
